FAERS Safety Report 13710689 (Version 3)
Quarter: 2017Q3

REPORT INFORMATION
  Report Type: Spontaneous
  Country: US (occurrence: US)
  Receive Date: 20170703
  Receipt Date: 20170804
  Transmission Date: 20171127
  Serious: No
  Sender: FDA-Public Use
  Company Number: US-GLAXOSMITHKLINE-US2017100488

PATIENT
  Age: 76 Year
  Sex: Female

DRUGS (2)
  1. LOVAZA [Suspect]
     Active Substance: OMEGA-3-ACID ETHYL ESTERS
     Dosage: 8 G, QD
  2. LOVAZA [Suspect]
     Active Substance: OMEGA-3-ACID ETHYL ESTERS
     Indication: PRODUCT USED FOR UNKNOWN INDICATION
     Dosage: 4 G, QD

REACTIONS (4)
  - Product physical issue [Unknown]
  - Prescribed overdose [Unknown]
  - Drug dose omission [Not Recovered/Not Resolved]
  - Bedridden [Unknown]

NARRATIVE: CASE EVENT DATE: 201701
